FAERS Safety Report 5895085-X (Version None)
Quarter: 2008Q3

REPORT INFORMATION
  Report Type: 
  Country: None (occurrence: None)
  Receive Date: 20080924
  Receipt Date: 20080911
  Transmission Date: 20090109
  Serious: Yes (Other)
  Sender: FDA-Public Use
  Company Number: DK-PFIZER INC-2008076539

PATIENT
  Sex: Female
  Weight: 102 kg

DRUGS (2)
  1. CHANTIX [Suspect]
     Indication: SMOKING CESSATION THERAPY
     Dosage: TEXT:BID DAILY
     Route: 048
     Dates: start: 20080430, end: 20080803
  2. CIPRALEX [Interacting]
     Indication: DEPRESSION
     Route: 048
     Dates: start: 20071117

REACTIONS (2)
  - DEPRESSION [None]
  - DRUG INTERACTION [None]
